FAERS Safety Report 15599280 (Version 2)
Quarter: 2018Q4

REPORT INFORMATION
  Report Type: Report from Study
  Country: US (occurrence: US)
  Receive Date: 20181108
  Receipt Date: 20181201
  Transmission Date: 20190205
  Serious: Yes (Death)
  Sender: FDA-Public Use
  Company Number: US-TEVA-2018-US-972735

PATIENT
  Age: 38 Year
  Sex: Male
  Weight: 88 kg

DRUGS (4)
  1. AMITRIPTYLINE [Suspect]
     Active Substance: AMITRIPTYLINE
     Route: 065
  2. NORTRIPTYLINE [Suspect]
     Active Substance: NORTRIPTYLINE
     Route: 065
  3. TRAZODONE [Suspect]
     Active Substance: TRAZODONE HYDROCHLORIDE
     Route: 065
  4. METHADONE [Suspect]
     Active Substance: METHADONE HYDROCHLORIDE
     Route: 065

REACTIONS (1)
  - Accidental overdose [Fatal]
